FAERS Safety Report 24229640 (Version 2)
Quarter: 2024Q3

REPORT INFORMATION
  Report Type: Spontaneous
  Country: BR (occurrence: BR)
  Receive Date: 20240820
  Receipt Date: 20240826
  Transmission Date: 20241016
  Serious: Yes (Life-Threatening, Hospitalization, Other)
  Sender: ELI LILLY AND CO
  Company Number: BR-ELI_LILLY_AND_COMPANY-BR202408010303

PATIENT
  Age: 72 Year
  Sex: Female
  Weight: 56 kg

DRUGS (6)
  1. OLUMIANT [Suspect]
     Active Substance: BARICITINIB
     Indication: Rheumatoid arthritis
     Dosage: 2 MG, DAILY
     Route: 065
     Dates: start: 2021
  2. OLUMIANT [Suspect]
     Active Substance: BARICITINIB
     Dosage: 2 MG, DAILY
     Route: 065
     Dates: start: 20240802
  3. LOSARTAN POTASSIUM [Concomitant]
     Active Substance: LOSARTAN POTASSIUM
     Indication: Hypertension
     Dosage: UNK, UNKNOWN
     Route: 065
  4. LOSARTAN [Concomitant]
     Active Substance: LOSARTAN\LOSARTAN POTASSIUM
     Indication: Hypertension
     Dosage: UNK, UNKNOWN
     Route: 065
  5. METICORTEN [Concomitant]
     Active Substance: PREDNISONE
     Indication: Rheumatoid arthritis
     Dosage: 10 MG, BID
     Route: 065
  6. CODEINE [Concomitant]
     Active Substance: CODEINE
     Indication: Rheumatoid arthritis
     Dosage: 30 MG, DAILY
     Route: 065

REACTIONS (4)
  - Sepsis [Unknown]
  - Leukopenia [Recovering/Resolving]
  - Decreased immune responsiveness [Unknown]
  - Pneumonia [Unknown]
